FAERS Safety Report 8264992-5 (Version None)
Quarter: 2012Q2

REPORT INFORMATION
  Report Type: 
  Country: None (occurrence: None)
  Receive Date: 20120403
  Receipt Date: 20120328
  Transmission Date: 20120825
  Serious: Yes (Other)
  Sender: FDA-Public Use
  Company Number: WAES 1203DEU00019

PATIENT
  Age: 51 Year
  Sex: Male

DRUGS (10)
  1. EZETIMIBE [Concomitant]
  2. METRONIDAZOLE [Concomitant]
  3. ABACAVIR SULFATE/LAMIVUDINE [Concomitant]
  4. BETAMETHASONE VALERATE (+) FUSIDIC ACID [Concomitant]
  5. BISOPROLOL FUMARATE [Concomitant]
  6. ISENTRESS [Suspect]
     Indication: HIV INFECTION
     Dosage: 400 MG/BID;PO
     Route: 048
     Dates: start: 20100907
  7. ASPIRIN [Concomitant]
  8. EMTRICITABINE + TENOFOVIR DISOPROXIL FUM [Concomitant]
  9. PRAVASTATIN SODIUM [Concomitant]
  10. RAMIPRIL [Concomitant]

REACTIONS (3)
  - TOXICITY TO VARIOUS AGENTS [None]
  - VITAMIN D DEFICIENCY [None]
  - HYPERTRIGLYCERIDAEMIA [None]
